FAERS Safety Report 13689362 (Version 2)
Quarter: 2017Q3

REPORT INFORMATION
  Report Type: Spontaneous
  Country: US (occurrence: US)
  Receive Date: 20170626
  Receipt Date: 20170705
  Transmission Date: 20171127
  Serious: Yes (Death, Hospitalization)
  Sender: FDA-Public Use
  Company Number: US-AUROBINDO-AUR-APL-2017-35875

PATIENT
  Age: 56 Year
  Sex: Male

DRUGS (4)
  1. MYCOPHENOLATE MOFETIL. [Concomitant]
     Active Substance: MYCOPHENOLATE MOFETIL
     Indication: RENAL TRANSPLANT
     Dosage: 1 G, TWO TIMES A DAY
     Route: 065
  2. METFORMIN [Concomitant]
     Active Substance: METFORMIN HYDROCHLORIDE
     Indication: PRODUCT USED FOR UNKNOWN INDICATION
     Dosage: 850 MG, UNK
     Route: 065
  3. PREDNISONE. [Suspect]
     Active Substance: PREDNISONE
     Indication: RENAL TRANSPLANT
     Dosage: 5 MG, UNK
     Route: 065
  4. ASPIRIN                            /00002701/ [Concomitant]
     Active Substance: ASPIRIN
     Indication: PRODUCT USED FOR UNKNOWN INDICATION
     Dosage: 1000 MG, DAILY
     Route: 065

REACTIONS (16)
  - Productive cough [Recovered/Resolved]
  - Pyrexia [Recovered/Resolved]
  - Respiratory failure [Unknown]
  - Malaise [Recovered/Resolved]
  - Back pain [Recovered/Resolved]
  - Death [Fatal]
  - Pneumonia escherichia [Unknown]
  - Multiple organ dysfunction syndrome [Unknown]
  - Muscular weakness [Unknown]
  - Septic shock [Unknown]
  - Tuberculosis [Unknown]
  - Weight increased [Unknown]
  - Spinal cord compression [Unknown]
  - Osteomyelitis [Unknown]
  - Bone tuberculosis [Unknown]
  - Pneumonia pseudomonal [Unknown]
